FAERS Safety Report 7204271-8 (Version None)
Quarter: 2010Q4

REPORT INFORMATION
  Report Type: 
  Country: None (occurrence: None)
  Receive Date: 20101230
  Receipt Date: 20101221
  Transmission Date: 20110411
  Serious: Yes (Other)
  Sender: FDA-Public Use
  Company Number: BE-ROCHE-744777

PATIENT
  Age: 59 Year
  Sex: Female
  Weight: 80 kg

DRUGS (4)
  1. ROACTEMRA [Suspect]
     Indication: RHEUMATOID ARTHRITIS
     Route: 042
     Dates: start: 20100118
  2. MEDROL [Concomitant]
     Indication: RHEUMATOID ARTHRITIS
     Dosage: FREQUENCY: OAD
  3. MOBIC [Concomitant]
     Indication: RHEUMATOID ARTHRITIS
  4. SPIRIVA [Concomitant]
     Indication: CHRONIC OBSTRUCTIVE PULMONARY DISEASE

REACTIONS (1)
  - PERIPHERAL EMBOLISM [None]
